FAERS Safety Report 10018712 (Version 1)
Quarter: 2014Q1

REPORT INFORMATION
  Report Type: Spontaneous
  Country: US (occurrence: None)
  Receive Date: 20140314
  Receipt Date: 20140314
  Transmission Date: 20141002
  Serious: No
  Sender: FDA-Public Use
  Company Number: None

PATIENT
  Age: 56 Year
  Sex: Male
  Weight: 78.02 kg

DRUGS (2)
  1. LIDOCAINE PATCH [Suspect]
     Indication: ARTHRITIS
     Route: 061
     Dates: start: 20140301, end: 20140312
  2. LIDOCAINE PATCH [Suspect]
     Indication: COMPLEX REGIONAL PAIN SYNDROME
     Route: 061
     Dates: start: 20140301, end: 20140312

REACTIONS (4)
  - Product substitution issue [None]
  - Drug ineffective [None]
  - Product physical issue [None]
  - Product quality issue [None]
